FAERS Safety Report 5576045-5 (Version None)
Quarter: 2007Q4

REPORT INFORMATION
  Report Type: 
  Country: None (occurrence: None)
  Receive Date: 20071228
  Receipt Date: 20071207
  Transmission Date: 20080405
  Serious: No
  Sender: FDA-Public Use
  Company Number: A0698857A

PATIENT
  Sex: Female

DRUGS (7)
  1. ADVAIR DISKUS 100/50 [Suspect]
     Indication: ASTHMA
     Route: 055
  2. ACCUPRIL [Concomitant]
  3. OMEPRAZOLE [Concomitant]
  4. ARTHROTEC [Concomitant]
  5. SINGULAIR [Concomitant]
  6. SIMVASTATIN [Concomitant]
  7. ESTRADIOL [Concomitant]

REACTIONS (3)
  - CANDIDIASIS [None]
  - DYSPHONIA [None]
  - THROAT IRRITATION [None]
